FAERS Safety Report 24846581 (Version 1)
Quarter: 2025Q1

REPORT INFORMATION
  Report Type: Spontaneous
  Country: US (occurrence: US)
  Receive Date: 20250115
  Receipt Date: 20250115
  Transmission Date: 20250409
  Serious: No
  Sender: INCYTE
  Company Number: US-EVENT-001056

PATIENT

DRUGS (1)
  1. OPZELURA [Suspect]
     Active Substance: RUXOLITINIB PHOSPHATE
     Indication: Dermatitis atopic
     Dosage: BID
     Route: 065
     Dates: start: 20240901

REACTIONS (3)
  - Sinusitis [Recovering/Resolving]
  - Dermatitis atopic [Unknown]
  - Product dose omission issue [Unknown]
